FAERS Safety Report 7069360-X (Version None)
Quarter: 2010Q4

REPORT INFORMATION
  Report Type: 
  Country: None (occurrence: None)
  Receive Date: 20101028
  Receipt Date: 20101018
  Transmission Date: 20110411
  Serious: Yes (Hospitalization)
  Sender: FDA-Public Use
  Company Number: FR-GENENTECH-296640

PATIENT
  Sex: Male
  Weight: 83 kg

DRUGS (10)
  1. RITUXIMAB [Suspect]
     Indication: MANTLE CELL LYMPHOMA
     Dosage: UNK
     Route: 042
     Dates: start: 20091204
  2. RITUXIMAB [Suspect]
     Dosage: UNK
     Route: 042
  3. ARACYTINE [Suspect]
     Indication: MANTLE CELL LYMPHOMA
     Dosage: UNK
     Route: 042
     Dates: start: 20091201
  4. ARACYTINE [Suspect]
     Dosage: UNK
     Route: 042
  5. CISPLATIN [Suspect]
     Indication: MANTLE CELL LYMPHOMA
     Dosage: UNK
     Route: 042
     Dates: start: 20091201
  6. CISPLATIN [Suspect]
     Dosage: UNK
     Route: 042
  7. DEXAMETHASONE [Suspect]
     Indication: MANTLE CELL LYMPHOMA
     Dosage: UNK
     Route: 042
     Dates: start: 20091201
  8. DEXAMETHASONE [Suspect]
     Dosage: UNK
     Route: 042
  9. NEULASTIM [Concomitant]
     Indication: MANTLE CELL LYMPHOMA
     Dosage: UNK
     Route: 042
     Dates: start: 20091205
  10. NOVORAPID [Concomitant]
     Indication: DIABETES MELLITUS
     Dosage: UNK
     Route: 058

REACTIONS (3)
  - FEBRILE NEUTROPENIA [None]
  - POSTOPERATIVE WOUND INFECTION [None]
  - THROMBOCYTOPENIA [None]
